FAERS Safety Report 15214534 (Version 6)
Quarter: 2019Q2

REPORT INFORMATION
  Report Type: Spontaneous
  Country: DE (occurrence: DE)
  Receive Date: 20180730
  Receipt Date: 20190404
  Transmission Date: 20190711
  Serious: Yes (Death, Life-Threatening, Hospitalization, Other)
  Sender: FDA-Public Use
  Company Number: GB-AUROBINDO-AUR-APL-2018-022707

PATIENT

DRUGS (58)
  1. METFORMIN [Suspect]
     Active Substance: METFORMIN HYDROCHLORIDE
     Indication: DIABETES MELLITUS
     Dosage: 250 MG, UNK
     Route: 048
     Dates: start: 20010616, end: 20010714
  2. DIAZEPAM. [Suspect]
     Active Substance: DIAZEPAM
     Indication: RESTLESSNESS
     Dosage: 5 MG, UNK
     Route: 048
     Dates: start: 20010616, end: 20010703
  3. AMPHOTERICIN B. [Suspect]
     Active Substance: AMPHOTERICIN B
     Indication: PROPHYLAXIS
     Dosage: 200 MILLIGRAM
     Route: 048
     Dates: start: 20010703, end: 20010714
  4. HALDOL [Suspect]
     Active Substance: HALOPERIDOL
     Indication: RESTLESSNESS
     Dosage: UNK
     Route: 016
     Dates: start: 20010713, end: 20010714
  5. MOLSIDOMINE [Suspect]
     Active Substance: MOLSIDOMINE
     Dosage: 8 MILLIGRAM, ONCE A DAY (DOSEREDUCED FROM 16 TO8MG DAILY))
     Route: 048
     Dates: start: 20010703, end: 20010714
  6. PLAVIX [Suspect]
     Active Substance: CLOPIDOGREL BISULFATE
     Indication: CORONARY ARTERY DISEASE
     Dosage: 75 MG, UNK
     Route: 048
     Dates: start: 20010704, end: 20010714
  7. PERENTEROL [Suspect]
     Active Substance: SACCHAROMYCES CEREVISIAE
     Dosage: 100 MG, UNK, 100 TO 300 MG
     Route: 048
     Dates: end: 20010714
  8. ZAROXOLYN [Suspect]
     Active Substance: METOLAZONE
     Indication: HYPERTENSION
     Dosage: 2 MG, UNK
     Route: 048
     Dates: start: 20010712, end: 20010713
  9. METFORMIN [Suspect]
     Active Substance: METFORMIN HYDROCHLORIDE
     Dosage: 7 MG, UNK
     Route: 048
  10. TRANXENE [Suspect]
     Active Substance: CLORAZEPATE DIPOTASSIUM
     Indication: RESTLESSNESS
     Dosage: 10 MG, 1D
     Route: 048
     Dates: start: 20010710, end: 20010714
  11. HALDOL [Suspect]
     Active Substance: HALOPERIDOL
     Dosage: UNK
     Route: 048
     Dates: start: 20010713, end: 20010714
  12. SORTIS [Suspect]
     Active Substance: ATORVASTATIN
     Indication: HYPERLIPIDAEMIA
     Dosage: 20 MG,UNK
     Route: 048
     Dates: start: 20010616, end: 20010703
  13. DIPOTASSIUM CLORAZEPATE [Suspect]
     Active Substance: CLORAZEPATE DIPOTASSIUM
     Indication: RESTLESSNESS
     Dosage: 10 MG, UNK
     Route: 048
     Dates: start: 20010710, end: 20010714
  14. IRENAT [Suspect]
     Active Substance: SODIUM PERCHLORATE
     Indication: HYPERTHYROIDISM
     Dosage: 688 MG, TOTAL DAILYDOSE1377MG TO2065 MG
     Route: 048
     Dates: start: 20010618, end: 20010714
  15. BISOPROLOL FUMARATE. [Concomitant]
     Active Substance: BISOPROLOL FUMARATE
     Dosage: 5 MILLIGRAM, ONCE A DAY
     Route: 048
     Dates: end: 20010714
  16. ATORVASTATIN CALCIUM. [Concomitant]
     Active Substance: ATORVASTATIN CALCIUM
     Indication: HYPERLIPIDAEMIA
     Dosage: UNK
     Route: 048
     Dates: end: 20010703
  17. PANTOZOL [Concomitant]
     Active Substance: PANTOPRAZOLE SODIUM
     Indication: PROPHYLAXIS
     Dosage: 40 MILLIGRAM, ONCE A DAY
     Route: 048
     Dates: start: 20010614
  18. NOVODIGAL                          /00017701/ [Suspect]
     Active Substance: DIGOXIN
     Indication: CORONARY ARTERY DISEASE
     Dosage: UNK
     Route: 048
     Dates: start: 20010703
  19. PERENTEROL [Suspect]
     Active Substance: SACCHAROMYCES CEREVISIAE
     Indication: DIARRHOEA
     Dosage: 300 MG, UNK, 100 TO 300 MG
     Route: 048
     Dates: start: 20010711, end: 20010714
  20. LASIX [Suspect]
     Active Substance: FUROSEMIDE
     Indication: HYPERTENSION
     Dosage: 120 MG, UNK, 80 MG TO120MG DAILY
     Route: 042
     Dates: start: 20010703, end: 20010714
  21. CONCOR [Suspect]
     Active Substance: BISOPROLOL FUMARATE
     Indication: CORONARY ARTERY DISEASE
     Dosage: 8 MG, UNK
     Route: 048
     Dates: start: 20010616, end: 20010714
  22. EUNERPAN [Suspect]
     Active Substance: MELPERONE HYDROCHLORIDE
     Indication: RESTLESSNESS
     Dosage: 105 MG, 1D,FROM 80 TO 105MG
     Route: 048
     Dates: start: 20010706, end: 20010712
  23. CEFTRIAXONE. [Suspect]
     Active Substance: CEFTRIAXONE
     Indication: PYREXIA
     Dosage: 2 G (DAILY DOSE), INTRAVENOUS
     Route: 042
     Dates: start: 20010629, end: 20010703
  24. DALTEPARIN SODIUM [Suspect]
     Active Substance: DALTEPARIN SODIUM
     Indication: THROMBOSIS PROPHYLAXIS
     Dosage: 2500 IU (DAILY DOSE), , SUBCUTANEOUS
     Route: 058
     Dates: start: 20010703, end: 20010714
  25. DECORTIN [Suspect]
     Active Substance: PREDNISONE
     Indication: RESTLESSNESS
  26. METOLAZONE. [Suspect]
     Active Substance: METOLAZONE
     Indication: HYPERTENSION
     Dosage: 2 MG,UNK
     Route: 048
     Dates: start: 20010712, end: 20010713
  27. METOCLOPRAMIDE. [Suspect]
     Active Substance: METOCLOPRAMIDE
     Indication: NAUSEA
     Dosage: 7 MG, 1D
     Route: 048
     Dates: start: 20010704, end: 20010712
  28. DIGOXIN. [Suspect]
     Active Substance: DIGOXIN
     Dosage: 0.3 MILLIGRAM, QD
     Route: 048
     Dates: end: 20010714
  29. CARBIMAZOLE [Suspect]
     Active Substance: CARBIMAZOLE
     Indication: HYPERTHYROIDISM
     Dosage: UNK, 20MG TO 30MG
     Route: 048
     Dates: start: 20010621, end: 20010714
  30. PANTOPRAZOLE [Suspect]
     Active Substance: PANTOPRAZOLE
     Indication: PROPHYLAXIS
     Dosage: 40 MG, 1D (DECREASED FROM 80 TO 40)
     Route: 048
     Dates: start: 20010616, end: 20010714
  31. GLIMEPIRIDE. [Concomitant]
     Active Substance: GLIMEPIRIDE
     Indication: DIABETES MELLITUS
     Dosage: 3 MILLIGRAM
     Route: 048
  32. ASPIRIN TABLETS [Suspect]
     Active Substance: ASPIRIN
     Indication: CORONARY ARTERY DISEASE
     Dosage: 100 MG (DAILY DOSE), , ORAL
     Route: 048
     Dates: start: 20010616, end: 20010714
  33. MELPERONE HYDROCHLORIDE [Suspect]
     Active Substance: MELPERONE HYDROCHLORIDE
     Indication: RESTLESSNESS
     Dosage: 16 ML (DAILY DOSE), , ORAL
     Route: 048
     Dates: start: 20010706, end: 20010712
  34. FRAGMIN [Suspect]
     Active Substance: DALTEPARIN SODIUM
     Indication: THROMBOSIS PROPHYLAXIS
     Dosage: 2500 IU,UNK
     Route: 058
     Dates: start: 20010703, end: 20010714
  35. NORVASC [Suspect]
     Active Substance: AMLODIPINE BESYLATE
     Indication: CORONARY ARTERY DISEASE
     Dosage: 5 MG, UNK
     Route: 048
     Dates: start: 20010703, end: 20010714
  36. POTASSIUM CHLORIDE. [Concomitant]
     Active Substance: POTASSIUM CHLORIDE
     Indication: ELECTROLYTE IMBALANCE
     Dosage: UNK
     Route: 065
     Dates: start: 20010703, end: 20010714
  37. POTASSIUM CHLORIDE. [Concomitant]
     Active Substance: POTASSIUM CHLORIDE
     Indication: PRODUCT USED FOR UNKNOWN INDICATION
  38. CIPROFLOXACIN HYDROCHLORIDE. [Suspect]
     Active Substance: CIPROFLOXACIN HYDROCHLORIDE
     Dosage: 500 MG,QD
     Route: 048
     Dates: start: 20010710, end: 20010711
  39. AMPHOTERICIN B. [Suspect]
     Active Substance: AMPHOTERICIN B
     Indication: ANTIFUNGAL PROPHYLAXIS
     Dosage: 8 DF, QD
     Route: 048
     Dates: start: 20010703, end: 20010714
  40. DIGOXIN. [Suspect]
     Active Substance: DIGOXIN
     Indication: CORONARY ARTERY DISEASE
     Dosage: 0.3 MG, QD
     Route: 048
     Dates: start: 20010703, end: 20010714
  41. LANTUS [Suspect]
     Active Substance: INSULIN GLARGINE
     Indication: DIABETES MELLITUS
     Dosage: 16 IU,UNK
     Route: 058
     Dates: start: 20010616, end: 20010629
  42. PANTOPRAZOLE [Suspect]
     Active Substance: PANTOPRAZOLE
     Dosage: 80 UNK
     Route: 048
  43. LEXOTANIL [Concomitant]
     Active Substance: BROMAZEPAM
     Indication: RESTLESSNESS
     Dosage: 1.5 MILLIGRAM, BID
     Route: 048
     Dates: start: 20010713, end: 20010714
  44. PARACETAMOL [Suspect]
     Active Substance: ACETAMINOPHEN
     Indication: PAIN
     Dosage: 500 MG, UNK
     Route: 048
     Dates: start: 20010711, end: 20010711
  45. AMLODIPINE [Suspect]
     Active Substance: AMLODIPINE BESYLATE
     Indication: CORONARY ARTERY DISEASE
     Dosage: 10 MILLIGRAM, ONCE A DAY
     Route: 048
     Dates: start: 20010703, end: 20010714
  46. ISOSORBIDE MONONITRATE. [Suspect]
     Active Substance: ISOSORBIDE MONONITRATE
     Indication: CORONARY ARTERY DISEASE
     Dosage: 1 DOSAGE FORM, ONCE A DAY
     Route: 048
     Dates: start: 20010703, end: 20010714
  47. PREDNISOLONE SODIUM SUCCINATE [Suspect]
     Active Substance: PREDNISOLONE SODIUM SUCCINATE
     Indication: DYSPNOEA
     Dosage: 50 MG, UNK(ONCE,GALENICAL FORM: SOL
     Route: 042
     Dates: start: 20010703, end: 20010703
  48. MOLSIDOMINE [Suspect]
     Active Substance: MOLSIDOMINE
     Indication: CORONARY ARTERY DISEASE
     Dosage: 16 MILLIGRAM, ONCE A DAY
     Route: 048
  49. ROCEPHIN [Suspect]
     Active Substance: CEFTRIAXONE SODIUM
     Indication: PYREXIA
     Dosage: 2 GRAM, ONCE A DAY, 1 G, BID (2 G DAILY DOSE)
     Route: 042
     Dates: start: 20010629, end: 20010703
  50. CAPTOPRIL. [Concomitant]
     Active Substance: CAPTOPRIL
     Indication: CORONARY ARTERY DISEASE
     Dosage: UNK
     Route: 048
     Dates: start: 20010616, end: 20010714
  51. INSULIN GLARGINE [Concomitant]
     Active Substance: INSULIN GLARGINE
     Indication: DIABETES MELLITUS
     Dosage: 16 INTERNATIONAL UNIT, ONCE A DAY
     Route: 058
     Dates: end: 20010629
  52. BISOPROLOL FUMARATE. [Concomitant]
     Active Substance: BISOPROLOL FUMARATE
     Indication: CORONARY ARTERY DISEASE
     Dosage: 8 MG, UNK EV 29 DAYS
     Route: 048
     Dates: start: 20010616, end: 20010714
  53. SODIUM PERCHLORATE [Concomitant]
     Active Substance: SODIUM PERCHLORATE
     Indication: HYPERTHYROIDISM
     Dosage: UNK UNK, UNK ()
     Route: 048
     Dates: start: 20010618, end: 20010714
  54. RAMIPRIL TABLET [Suspect]
     Active Substance: RAMIPRIL
     Indication: CORONARY ARTERY DISEASE
     Dosage: 10 MG, QD
     Route: 048
     Dates: start: 20010616, end: 20010714
  55. FUROSEMIDE. [Suspect]
     Active Substance: FUROSEMIDE
     Indication: HYPERTENSION
     Dosage: 80 MG (DAILY DOSE), , INTRAVENOUS
     Route: 042
     Dates: start: 20010703, end: 20010714
  56. DECORTIN [Suspect]
     Active Substance: PREDNISONE
     Indication: DYSPNOEA
     Dosage: 50 MG, QD
     Route: 042
     Dates: start: 20010703, end: 20010703
  57. CIPROFLOXACIN HYDROCHLORIDE. [Suspect]
     Active Substance: CIPROFLOXACIN HYDROCHLORIDE
     Indication: CHOLECYSTITIS
     Dosage: 1000 MG,QD
     Route: 048
     Dates: start: 20010620, end: 20010628
  58. AMARYL [Suspect]
     Active Substance: GLIMEPIRIDE
     Indication: DIABETES MELLITUS
     Dosage: 3 MG, UNK
     Route: 048
     Dates: start: 20010616, end: 20010703

REACTIONS (14)
  - Cholecystitis [Fatal]
  - Condition aggravated [Fatal]
  - Toxic epidermal necrolysis [Fatal]
  - Electrolyte imbalance [Fatal]
  - Dermatitis exfoliative [Unknown]
  - Multiple organ dysfunction syndrome [Fatal]
  - Nausea [Fatal]
  - Blister [Unknown]
  - Respiratory disorder [Fatal]
  - Hyperthyroidism [Fatal]
  - Diarrhoea [Fatal]
  - Restlessness [Fatal]
  - Cholelithiasis [Fatal]
  - Erythema [Unknown]

NARRATIVE: CASE EVENT DATE: 20010703
